FAERS Safety Report 4616355-9 (Version None)
Quarter: 2005Q1

REPORT INFORMATION
  Report Type: 
  Country: None (occurrence: None)
  Receive Date: 20050321
  Receipt Date: 20050307
  Transmission Date: 20050727
  Serious: Yes (Other)
  Sender: FDA-Public Use
  Company Number: DSA_25668_2005

PATIENT
  Age: 50 Year
  Sex: Male
  Weight: 72.5755 kg

DRUGS (4)
  1. CARDIZEM LA [Suspect]
     Indication: HYPERTENSION
     Dosage: 240 MG Q DAY PO
     Route: 048
     Dates: start: 20031223, end: 20050101
  2. CARDIZEM LA [Suspect]
     Indication: HYPERTENSION
     Dosage: DF
  3. ALLEGRA [Concomitant]
  4. NASACORT AQ [Concomitant]

REACTIONS (6)
  - CATARACT CORTICAL [None]
  - CONDITION AGGRAVATED [None]
  - EYE DISORDER [None]
  - MUSCULOSKELETAL STIFFNESS [None]
  - PHOTOSENSITIVITY REACTION [None]
  - VISION BLURRED [None]
